FAERS Safety Report 6254055-2 (Version None)
Quarter: 2009Q3

REPORT INFORMATION
  Report Type: 
  Country: None (occurrence: None)
  Receive Date: 20090702
  Receipt Date: 20090623
  Transmission Date: 20100115
  Serious: Yes (Hospitalization)
  Sender: FDA-Public Use
  Company Number: CA-JNJFOC-20090607914

PATIENT
  Age: 44 Year
  Sex: Male

DRUGS (10)
  1. RISPERIDONE [Suspect]
     Indication: DRUG USE FOR UNKNOWN INDICATION
     Route: 065
  2. RALTEGRAVIR [Interacting]
     Indication: ANTIVIRAL TREATMENT
     Route: 065
  3. BUPROPION [Suspect]
     Indication: DRUG USE FOR UNKNOWN INDICATION
     Route: 065
  4. CLONAZEPAM [Suspect]
     Indication: DRUG USE FOR UNKNOWN INDICATION
     Route: 065
  5. CITALOPRAM HYDROBROMIDE [Suspect]
     Indication: DRUG USE FOR UNKNOWN INDICATION
     Route: 065
  6. QUETIAPINE FUMARATE [Suspect]
     Indication: DRUG USE FOR UNKNOWN INDICATION
     Route: 065
  7. TENOFOVIR [Concomitant]
     Indication: ANTIVIRAL TREATMENT
     Route: 065
  8. FTC [Concomitant]
     Indication: ANTIVIRAL TREATMENT
     Route: 065
  9. ATAZANAVIR SULFATE [Concomitant]
     Indication: ANTIVIRAL TREATMENT
     Route: 065
  10. RITONAVIR [Concomitant]
     Indication: ANTIVIRAL TREATMENT
     Route: 065

REACTIONS (4)
  - ANXIETY [None]
  - DEPRESSION SUICIDAL [None]
  - DRUG INTERACTION [None]
  - PSYCHOTIC DISORDER [None]
